FAERS Safety Report 10724705 (Version 1)
Quarter: 2015Q1

REPORT INFORMATION
  Report Type: Report from Study
  Country: CA (occurrence: CA)
  Receive Date: 20150120
  Receipt Date: 20150120
  Transmission Date: 20150721
  Serious: Yes (Hospitalization)
  Sender: FDA-Public Use
  Company Number: CA-JNJFOC-20150109150

PATIENT
  Age: 25 Year
  Sex: Male
  Weight: 72 kg

DRUGS (1)
  1. SIMPONI [Suspect]
     Active Substance: GOLIMUMAB
     Indication: COLITIS ULCERATIVE
     Route: 058
     Dates: start: 20141211

REACTIONS (2)
  - Infection [Unknown]
  - Central venous catheterisation [Unknown]

NARRATIVE: CASE EVENT DATE: 20141215
